FAERS Safety Report 14668332 (Version 1)
Quarter: 2018Q1

REPORT INFORMATION
  Report Type: Report from Study
  Country: None (occurrence: FI)
  Receive Date: 20180322
  Receipt Date: 20180322
  Transmission Date: 20180509
  Serious: Yes (Hospitalization, Other)
  Sender: FDA-Public Use
  Company Number: FI-ABBVIE-18K-055-2292032-00

PATIENT
  Age: 76 Year
  Sex: Female

DRUGS (2)
  1. DUODOPA [Suspect]
     Active Substance: CARBIDOPA\LEVODOPA
     Indication: PARKINSON^S DISEASE
     Dosage: MD 4 ML; CD AT DAYTIME 5.2 ML/H; CD AT NIGHT 2.9 ML/H; ED 1 ML. 24H TREATMENT.
     Route: 050
     Dates: start: 201611
  2. OPAMOX [Concomitant]
     Active Substance: OXAZEPAM
     Indication: SLEEP DISORDER THERAPY
     Dosage: FREQUENCY TEXT : ON A COUPLE OF NIGHTS PER WEEK

REACTIONS (6)
  - Gastric disorder [Not Recovered/Not Resolved]
  - Device issue [Unknown]
  - Device breakage [Unknown]
  - Abdominal pain upper [Not Recovered/Not Resolved]
  - Cholecystitis acute [Recovering/Resolving]
  - Back pain [Not Recovered/Not Resolved]

NARRATIVE: CASE EVENT DATE: 20180311
